FAERS Safety Report 7587517-6 (Version None)
Quarter: 2011Q3

REPORT INFORMATION
  Report Type: 
  Country: None (occurrence: None)
  Receive Date: 20110704
  Receipt Date: 20110620
  Transmission Date: 20111222
  Serious: Yes (Other)
  Sender: FDA-Public Use
  Company Number: US-ELI_LILLY_AND_COMPANY-US201106006291

PATIENT
  Sex: Female

DRUGS (9)
  1. VANCOMYCIN [Concomitant]
     Dosage: UNK, UNKNOWN
     Route: 048
  2. ADVAIR DISKUS 100/50 [Concomitant]
     Dosage: UNK, UNKNOWN
     Route: 065
  3. SPIRIVA [Concomitant]
     Dosage: UNK, UNKNOWN
     Route: 065
  4. LASIX [Concomitant]
     Dosage: UNK, UNKNOWN
     Route: 065
  5. GABAPENTIN [Concomitant]
     Dosage: UNK, UNKNOWN
     Route: 065
  6. FORTEO [Suspect]
     Indication: OSTEOPOROSIS
     Dosage: UNK, QD
     Route: 065
     Dates: start: 20050101
  7. AUGMENTIN '125' [Concomitant]
     Dosage: UNK, UNKNOWN
     Route: 065
     Dates: start: 20110501
  8. TOBRAMYCIN [Concomitant]
     Dosage: UNK, UNKNOWN
     Route: 065
  9. VITAMIN D [Concomitant]
     Dosage: UNK, UNKNOWN
     Route: 065

REACTIONS (9)
  - DYSPHAGIA [None]
  - MEDICATION ERROR [None]
  - HYPOACUSIS [None]
  - VOMITING [None]
  - BONE DISORDER [None]
  - LUNG NEOPLASM MALIGNANT [None]
  - MALNUTRITION [None]
  - DIARRHOEA [None]
  - OFF LABEL USE [None]
